FAERS Safety Report 15586850 (Version 1)
Quarter: 2018Q4

REPORT INFORMATION
  Report Type: Spontaneous
  Country: US (occurrence: US)
  Receive Date: 20181102
  Receipt Date: 20181102
  Transmission Date: 20190205
  Serious: Yes (Other)
  Sender: FDA-Public Use
  Company Number: None

PATIENT
  Age: 83 Year
  Sex: Female
  Weight: 79.4 kg

DRUGS (2)
  1. ETOMIDATE. [Concomitant]
     Active Substance: ETOMIDATE
  2. SUCCINYLCHOLINE 200MG/10ML [Suspect]
     Active Substance: SUCCINYLCHOLINE
     Indication: ENDOTRACHEAL INTUBATION
     Dosage: 100MG ONCE IV PUSH ONCE
     Route: 042
     Dates: start: 20181017

REACTIONS (1)
  - Drug ineffective [None]

NARRATIVE: CASE EVENT DATE: 20181017
